FAERS Safety Report 9414296 (Version 1)
Quarter: 2013Q3

REPORT INFORMATION
  Report Type: Spontaneous
  Country: CA (occurrence: CA)
  Receive Date: 20130723
  Receipt Date: 20130723
  Transmission Date: 20140515
  Serious: Yes (Hospitalization, Other)
  Sender: FDA-Public Use
  Company Number: CA-BAXTER-2013BAX027363

PATIENT
  Age: 49 Year
  Sex: Male

DRUGS (1)
  1. GAMMAGARD LIQUID -IMMUNE GLOBULIN INTRAVENOUS (HUMAN), [IGIV] 10% [Suspect]
     Indication: HERPES SIMPLEX ENCEPHALITIS
     Route: 065

REACTIONS (3)
  - Anaplastic astrocytoma [Unknown]
  - Partial seizures [Unknown]
  - Drug ineffective [Unknown]
